FAERS Safety Report 8199398-0 (Version None)
Quarter: 2012Q1

REPORT INFORMATION
  Report Type: 
  Country: None (occurrence: None)
  Receive Date: 20120309
  Receipt Date: 20120305
  Transmission Date: 20120608
  Serious: Yes (Hospitalization)
  Sender: FDA-Public Use
  Company Number: DE-ABBOTT-12P-062-0911676-00

PATIENT
  Sex: Male
  Weight: 85 kg

DRUGS (1)
  1. HUMIRA [Suspect]
     Indication: PSORIATIC ARTHROPATHY
     Route: 058
     Dates: start: 20090307, end: 20111101

REACTIONS (3)
  - CEREBRAL INFARCTION [None]
  - CARDIAC VALVE VEGETATION [None]
  - ANTIPHOSPHOLIPID ANTIBODIES POSITIVE [None]
